FAERS Safety Report 6794970-4 (Version None)
Quarter: 2010Q2

REPORT INFORMATION
  Report Type: 
  Country: None (occurrence: None)
  Receive Date: 20100625
  Receipt Date: 20100618
  Transmission Date: 20101027
  Serious: Yes (Hospitalization, Other)
  Sender: FDA-Public Use
  Company Number: HQWYE043417FEB04

PATIENT
  Sex: Female

DRUGS (1)
  1. PREMPRO [Suspect]
     Dosage: 0.625MG/UNSPECIFIED
     Route: 048
     Dates: start: 19950921, end: 20010201

REACTIONS (1)
  - BREAST CANCER METASTATIC [None]
